FAERS Safety Report 8845299 (Version 1)
Quarter: 2012Q4

REPORT INFORMATION
  Report Type: Spontaneous
  Country: US (occurrence: None)
  Receive Date: 20121016
  Receipt Date: 20121016
  Transmission Date: 20130627
  Serious: No
  Sender: FDA-Public Use
  Company Number: None

PATIENT
  Sex: Male
  Weight: 73.09 kg

DRUGS (1)
  1. CETUXIMAB [Suspect]
     Dates: start: 20120925, end: 20120925

REACTIONS (5)
  - Rash [None]
  - Dry mouth [None]
  - Stomatitis [None]
  - Eating disorder [None]
  - Weight decreased [None]
